FAERS Safety Report 17041388 (Version 1)
Quarter: 2019Q4

REPORT INFORMATION
  Report Type: Report from Study
  Country: AU (occurrence: AU)
  Receive Date: 20191118
  Receipt Date: 20191118
  Transmission Date: 20200122
  Serious: Yes (Other)
  Sender: FDA-Public Use
  Company Number: AU-ROCHE-2467742

PATIENT
  Sex: Female

DRUGS (5)
  1. TRASTUZUMAB. [Suspect]
     Active Substance: TRASTUZUMAB
     Indication: BREAST CANCER
     Route: 042
  2. EPIRUBICIN [Suspect]
     Active Substance: EPIRUBICIN
     Indication: BREAST CANCER
     Route: 042
  3. CYCLOPHOSPHAMIDE. [Suspect]
     Active Substance: CYCLOPHOSPHAMIDE
     Indication: BREAST CANCER
     Route: 042
  4. TRASTUZUMAB. [Suspect]
     Active Substance: TRASTUZUMAB
     Dosage: SECOND AND ALL SUBSEQUENT MAINTENANCE DOSES
     Route: 042
  5. NAB-PACLITAXEL [Suspect]
     Active Substance: PACLITAXEL
     Indication: BREAST CANCER
     Dosage: ON DAYS 1, 8, AND 15?3 WEEKS OF TREATMENT WITH ONE WEEK OFF (28 DAY CYCLE) EVERY 4 WEEKS
     Route: 042

REACTIONS (7)
  - Diarrhoea [Unknown]
  - Peripheral sensory neuropathy [Unknown]
  - Febrile neutropenia [Unknown]
  - Neutropenia [Unknown]
  - Fatigue [Unknown]
  - Transaminases abnormal [Unknown]
  - Pneumothorax [Unknown]
